FAERS Safety Report 8593875-6 (Version None)
Quarter: 2012Q3

REPORT INFORMATION
  Report Type: 
  Country: None (occurrence: None)
  Receive Date: 20120814
  Receipt Date: 20120629
  Transmission Date: 20120928
  Serious: No
  Sender: FDA-Public Use
  Company Number: US-ASTRAZENECA-2012SE44533

PATIENT
  Age: 64 Year
  Sex: Male
  Weight: 117.5 kg

DRUGS (2)
  1. GEMFIBROZIL [Concomitant]
     Indication: BLOOD TRIGLYCERIDES INCREASED
     Dates: start: 20070101
  2. OMEPRAZOLE [Suspect]
     Indication: GASTROOESOPHAGEAL REFLUX DISEASE
     Route: 048
     Dates: start: 20100101

REACTIONS (3)
  - INTENTIONAL DRUG MISUSE [None]
  - DYSPEPSIA [None]
  - DRUG INEFFECTIVE [None]
